FAERS Safety Report 5463045-9 (Version None)
Quarter: 2007Q3

REPORT INFORMATION
  Report Type: 
  Country: None (occurrence: None)
  Receive Date: 20070918
  Receipt Date: 20070918
  Transmission Date: 20080115
  Serious: No
  Sender: FDA-Public Use
  Company Number: None

PATIENT
  Sex: Female
  Weight: 58.514 kg

DRUGS (2)
  1. CLOMID [Suspect]
     Indication: INFERTILITY
  2. CLOMID [Suspect]
     Indication: POLYCYSTIC OVARIES

REACTIONS (3)
  - FEAR [None]
  - FEELING ABNORMAL [None]
  - ILL-DEFINED DISORDER [None]
